FAERS Safety Report 9825327 (Version 1)
Quarter: 2014Q1

REPORT INFORMATION
  Report Type: Spontaneous
  Country: US (occurrence: None)
  Receive Date: 20140115
  Receipt Date: 20140115
  Transmission Date: 20141002
  Serious: Yes (Hospitalization)
  Sender: FDA-Public Use
  Company Number: None

PATIENT
  Age: 89 Year
  Sex: Female
  Weight: 65 kg

DRUGS (10)
  1. WARFARIN [Suspect]
     Indication: ATRIAL FIBRILLATION
     Route: 048
  2. ASPIRIN [Suspect]
     Indication: CORONARY ARTERY DISEASE
     Route: 048
  3. FUROSEMIDE [Concomitant]
  4. LISINOPRIL [Concomitant]
  5. POLYETHYLENE GLYCOL [Concomitant]
  6. PRAMIPEXOLE [Concomitant]
  7. RABEPRAZOLE [Concomitant]
  8. SIMVASTATIN [Concomitant]
  9. SOTALOL [Concomitant]
  10. VITAMIN E [Concomitant]

REACTIONS (5)
  - Epistaxis [None]
  - Haemoglobin decreased [None]
  - Haematocrit decreased [None]
  - International normalised ratio increased [None]
  - Dizziness [None]
